APPROVED DRUG PRODUCT: MYCOPHENOLATE SODIUM
Active Ingredient: MYCOPHENOLATE SODIUM
Strength: EQ 360MG BASE
Dosage Form/Route: TABLET, DELAYED RELEASE;ORAL
Application: A091558 | Product #002 | TE Code: AB
Applicant: APOTEX INC
Approved: Aug 19, 2014 | RLD: No | RS: No | Type: RX